FAERS Safety Report 9562823 (Version 2)
Quarter: 2014Q1

REPORT INFORMATION
  Report Type: Spontaneous
  Country: GB (occurrence: GB)
  Receive Date: 20130927
  Receipt Date: 20140205
  Transmission Date: 20141002
  Serious: Yes (Death)
  Sender: FDA-Public Use
  Company Number: GB-SANOFI-AVENTIS-2013SA093536

PATIENT
  Age: 73 Year
  Sex: Female

DRUGS (10)
  1. CAMPATH [Suspect]
     Indication: IMMUNOSUPPRESSION
     Dosage: STRENGHT: 30 MG/ML
     Route: 042
     Dates: start: 20130827, end: 20130827
  2. CHLORPHENAMINE [Concomitant]
     Indication: PREMEDICATION
  3. FENTANYL [Concomitant]
     Indication: ANAESTHESIA
  4. PROPOFOL [Concomitant]
     Indication: ANAESTHESIA
  5. ATRACURIUM [Concomitant]
     Indication: ANAESTHESIA
  6. SEVOFLURANE [Concomitant]
     Indication: ANAESTHESIA
  7. METARAMINOL [Concomitant]
     Indication: ANAESTHESIA
  8. MORPHINE [Concomitant]
     Indication: ANALGESIC THERAPY
  9. METHYLPREDNISOLONE [Concomitant]
  10. FLUCLOXACILLIN [Concomitant]

REACTIONS (1)
  - Anaphylactoid reaction [Fatal]
